FAERS Safety Report 6220306-3 (Version None)
Quarter: 2009Q2

REPORT INFORMATION
  Report Type: 
  Country: None (occurrence: None)
  Receive Date: 20090529
  Receipt Date: 20090518
  Transmission Date: 20091009
  Serious: No
  Sender: FDA-Public Use
  Company Number: 2009-196968-NL

PATIENT
  Age: 35 Year
  Sex: Female

DRUGS (1)
  1. BCG LIVE [Suspect]
     Indication: BLADDER CANCER
     Dosage: INTRAVESICAL
     Route: 043

REACTIONS (6)
  - ALANINE AMINOTRANSFERASE INCREASED [None]
  - ASPARTATE AMINOTRANSFERASE INCREASED [None]
  - CARBOHYDRATE ANTIGEN 125 INCREASED [None]
  - GAMMA-GLUTAMYLTRANSFERASE INCREASED [None]
  - HAEMATURIA [None]
  - PERITONEAL TUBERCULOSIS [None]
